FAERS Safety Report 8219468-8 (Version None)
Quarter: 2012Q1

REPORT INFORMATION
  Report Type: 
  Country: None (occurrence: None)
  Receive Date: 20120319
  Receipt Date: 20120316
  Transmission Date: 20120608
  Serious: No
  Sender: FDA-Public Use
  Company Number: US-PFIZER INC-2012070176

PATIENT
  Sex: Female
  Weight: 90.703 kg

DRUGS (7)
  1. LIPITOR [Suspect]
     Indication: BLOOD CHOLESTEROL INCREASED
     Dosage: 20 MG, DAILY
     Dates: start: 20040101, end: 20110901
  2. METOPROLOL TARTRATE [Suspect]
     Indication: HYPERTENSION
     Dosage: UNK
     Dates: start: 20040101, end: 20110701
  3. THYROID TAB [Concomitant]
     Indication: THYROID DISORDER
     Dosage: 30 MG, DAILY
     Dates: start: 20010101
  4. BONIVA [Suspect]
     Indication: OSTEOPOROSIS
     Dosage: 150 MG, MONTHLY
     Dates: start: 20110101
  5. LISINOPRIL [Suspect]
     Indication: HYPERTENSION
     Dosage: 10 MG, DAILY
     Dates: start: 20110701
  6. LIVALO [Suspect]
     Indication: BLOOD CHOLESTEROL INCREASED
     Dosage: 2 MG, DAILY
     Dates: start: 20110901
  7. FOSAMAX [Suspect]
     Indication: OSTEOPOROSIS
     Dosage: UNK
     Dates: start: 20040101, end: 20110101

REACTIONS (2)
  - MYALGIA [None]
  - PAIN [None]
